FAERS Safety Report 4845795-8 (Version None)
Quarter: 2005Q4

REPORT INFORMATION
  Report Type: 
  Country: None (occurrence: None)
  Receive Date: 20051201
  Receipt Date: 20051117
  Transmission Date: 20060501
  Serious: Yes (Death)
  Sender: FDA-Public Use
  Company Number: MK200509-0321-2

PATIENT
  Age: 53 Year
  Sex: Male
  Weight: 86.1834 kg

DRUGS (3)
  1. METHADOSE DISPERSIBLE TABLETS 40 MG [Suspect]
     Indication: PAIN
     Dosage: 40 MG Q AM, PO
     Route: 048
     Dates: start: 20050518, end: 20050519
  2. METHADONE (ROXANE) 10 MG TABLETS [Suspect]
     Dosage: 20 MG QHS
     Dates: start: 20050518, end: 20050519
  3. COCAINE AND OPIATES [Suspect]

REACTIONS (10)
  - ACCIDENTAL DEATH [None]
  - DRUG ABUSER [None]
  - DRUG TOXICITY [None]
  - ERYTHEMA [None]
  - FATIGUE [None]
  - FLUSHING [None]
  - PULMONARY OEDEMA [None]
  - SUDDEN ONSET OF SLEEP [None]
  - VENTRICULAR HYPERTROPHY [None]
  - VOMITING [None]
